FAERS Safety Report 11351481 (Version 1)
Quarter: 2015Q3

REPORT INFORMATION
  Report Type: Spontaneous
  Country: US (occurrence: US)
  Receive Date: 20150807
  Receipt Date: 20150807
  Transmission Date: 20151125
  Serious: No
  Sender: FDA-Public Use
  Company Number: US-JNJFOC-20141211401

PATIENT
  Age: 40 Year
  Sex: Male
  Weight: 83.92 kg

DRUGS (2)
  1. MENS ROGAINE EXTRA STRENGTH [Suspect]
     Active Substance: MINOXIDIL
     Indication: HAIR GROWTH ABNORMAL
     Route: 061
  2. MENS ROGAINE EXTRA STRENGTH [Suspect]
     Active Substance: MINOXIDIL
     Route: 061

REACTIONS (8)
  - Alopecia [Recovered/Resolved]
  - Skin wrinkling [Unknown]
  - Eye swelling [Unknown]
  - Skin atrophy [Unknown]
  - Hypoaesthesia [Unknown]
  - Vein disorder [Unknown]
  - Weight increased [Unknown]
  - Heart rate increased [Unknown]
